FAERS Safety Report 9230914 (Version 1)
Quarter: 2013Q2

REPORT INFORMATION
  Report Type: Spontaneous
  Country: US (occurrence: US)
  Receive Date: 20130415
  Receipt Date: 20130415
  Transmission Date: 20140414
  Serious: No
  Sender: FDA-Public Use
  Company Number: US-009507513-1211USA004286

PATIENT
  Sex: Female

DRUGS (1)
  1. EMEND [Suspect]
     Dosage: 125 MG ON DAY 1 AND 80 MG ON DAYS 2 AND 3
     Route: 048

REACTIONS (3)
  - Drug dose omission [Unknown]
  - No adverse event [Unknown]
  - Product packaging quantity issue [Unknown]
